FAERS Safety Report 17867845 (Version 3)
Quarter: 2020Q2

REPORT INFORMATION
  Report Type: Spontaneous
  Country: FR (occurrence: FR)
  Receive Date: 20200606
  Receipt Date: 20200615
  Transmission Date: 20200714
  Serious: Yes (Life-Threatening, Hospitalization, Other)
  Sender: FDA-Public Use
  Company Number: FR-AUROBINDO-AUR-APL-2020-026751

PATIENT
  Age: 89 Year
  Sex: Female

DRUGS (8)
  1. RILMENIDINE [Suspect]
     Active Substance: RILMENIDINE
     Indication: HYPERTENSION
     Dosage: UNK
     Route: 065
  2. VALSARTAN AND HYDROCHLOROTHIAZIDE [Suspect]
     Active Substance: HYDROCHLOROTHIAZIDE\VALSARTAN
     Indication: HYPERTENSION
     Dosage: UNK
     Route: 065
  3. MOBIC [Suspect]
     Active Substance: MELOXICAM
     Indication: PAIN
  4. METFORMIN FILM-COATED TABLET [Suspect]
     Active Substance: METFORMIN HYDROCHLORIDE
     Indication: TYPE 2 DIABETES MELLITUS
     Dosage: UNK
     Route: 065
  5. MORPHINE [Interacting]
     Active Substance: MORPHINE
     Indication: BACK PAIN
     Dosage: 30 MILLIGRAM (LONG-ACTING)
     Route: 065
  6. DICLOFENAC [Suspect]
     Active Substance: DICLOFENAC
     Indication: BACK PAIN
     Dosage: UNK
     Route: 061
  7. MOBIC [Suspect]
     Active Substance: MELOXICAM
     Indication: BACK PAIN
     Dosage: UNK
     Route: 065
  8. MORPHINE [Interacting]
     Active Substance: MORPHINE
     Indication: PAIN
     Dosage: 10 MILLIGRAM (IMMEDIATE RELEASE)
     Route: 065

REACTIONS (9)
  - Acute kidney injury [Recovering/Resolving]
  - Respiratory failure [Unknown]
  - Depressed level of consciousness [Unknown]
  - Lactic acidosis [Recovering/Resolving]
  - Medication error [Unknown]
  - Overdose [Unknown]
  - Bradypnoea [Unknown]
  - Drug interaction [Unknown]
  - Delirium [Unknown]
